FAERS Safety Report 10625963 (Version 4)
Quarter: 2017Q2

REPORT INFORMATION
  Report Type: Spontaneous
  Country: US (occurrence: US)
  Receive Date: 20141204
  Receipt Date: 20170512
  Transmission Date: 20170829
  Serious: No
  Sender: FDA-Public Use
  Company Number: US-JNJFOC-20141114828

PATIENT
  Sex: Male

DRUGS (2)
  1. INVEGA SUSTENNA [Suspect]
     Active Substance: PALIPERIDONE PALMITATE
     Indication: SCHIZOPHRENIA
     Route: 030
  2. INVEGA [Suspect]
     Active Substance: PALIPERIDONE
     Indication: SCHIZOPHRENIA
     Route: 048

REACTIONS (6)
  - Hyperprolactinaemia [Unknown]
  - Headache [Unknown]
  - Heart rate increased [Unknown]
  - Abnormal weight gain [Not Recovered/Not Resolved]
  - Galactorrhoea [Unknown]
  - Gynaecomastia [Unknown]
